FAERS Safety Report 10973411 (Version 2)
Quarter: 2015Q2

REPORT INFORMATION
  Report Type: Spontaneous
  Country: US (occurrence: US)
  Receive Date: 20150401
  Receipt Date: 20150612
  Transmission Date: 20150821
  Serious: No
  Sender: FDA-Public Use
  Company Number: US-009507513-1503USA006455

PATIENT
  Sex: Female
  Weight: 89.34 kg

DRUGS (1)
  1. NEXPLANON [Suspect]
     Active Substance: ETONOGESTREL
     Indication: CONTRACEPTION
     Dosage: RIGHT ARM
     Route: 059
     Dates: start: 20140609, end: 20150309

REACTIONS (4)
  - Device dislocation [Recovered/Resolved]
  - Device breakage [Recovered/Resolved]
  - Device deployment issue [Recovered/Resolved]
  - Vaginal discharge [Unknown]
